FAERS Safety Report 21492298 (Version 1)
Quarter: 2022Q4

REPORT INFORMATION
  Report Type: Spontaneous
  Country: US (occurrence: None)
  Receive Date: 20221020
  Receipt Date: 20221020
  Transmission Date: 20230113
  Serious: Yes (Hospitalization, Other)
  Sender: FDA-Public Use
  Company Number: None

PATIENT
  Age: 33 Year
  Sex: Female
  Weight: 80 kg

DRUGS (6)
  1. SUBUTEX [Suspect]
     Active Substance: BUPRENORPHINE HYDROCHLORIDE
     Indication: Pain
     Dosage: FREQUENCY : EVERY 8 HOURS;?
     Route: 060
     Dates: start: 20221005
  2. Tylenol=TPN [Concomitant]
  3. SOLU-MEDROL [Concomitant]
     Active Substance: METHYLPREDNISOLONE SODIUM SUCCINATE
  4. BENADRYL [Concomitant]
     Active Substance: DIPHENHYDRAMINE HYDROCHLORIDE
  5. PHENERGAN [Concomitant]
     Active Substance: PROMETHAZINE HYDROCHLORIDE
  6. ZOFRAN [Concomitant]
     Active Substance: ONDANSETRON HYDROCHLORIDE

REACTIONS (11)
  - Product solubility abnormal [None]
  - Gastrointestinal haemorrhage [None]
  - Post procedural haemorrhage [None]
  - Tooth fracture [None]
  - Tooth disorder [None]
  - Gastric pH decreased [None]
  - Impaired healing [None]
  - Tooth loss [None]
  - Abdominal pain upper [None]
  - Post procedural complication [None]
  - Procedural pain [None]

NARRATIVE: CASE EVENT DATE: 20221005
